FAERS Safety Report 8767323 (Version 1)
Quarter: 2012Q4

REPORT INFORMATION
  Report Type: 
  Country: US (occurrence: US)
  Receive Date: 20120904
  Receipt Date: 20120904
  Transmission Date: 20130627
  Serious: Yes (Other)
  Sender: FDA-Public Use
  Company Number: US-SANOFI-AVENTIS-2012SA061044

PATIENT
  Age: 75 Year
  Sex: Female

DRUGS (4)
  1. LANTUS [Suspect]
     Indication: TYPE II DIABETES MELLITUS
     Dosage: Dose:30 unit(s)
     Route: 058
  2. SOLOSTAR [Suspect]
     Indication: TYPE II DIABETES MELLITUS
  3. SYNTHROID [Concomitant]
     Route: 048
     Dates: end: 20120823
  4. SYNTHROID [Concomitant]
     Route: 048
     Dates: start: 20120824

REACTIONS (8)
  - Fall [Unknown]
  - Hand fracture [Unknown]
  - Contusion [Unknown]
  - Hypothyroidism [Unknown]
  - Blood glucose decreased [Not Recovered/Not Resolved]
  - Hyperhidrosis [Unknown]
  - Somnolence [Unknown]
  - Tremor [Unknown]
